FAERS Safety Report 25866803 (Version 1)
Quarter: 2025Q4

REPORT INFORMATION
  Report Type: Spontaneous
  Country: CN (occurrence: CN)
  Receive Date: 20251001
  Receipt Date: 20251001
  Transmission Date: 20260118
  Serious: Yes (Disabling)
  Sender: BOEHRINGER INGELHEIM
  Company Number: CN-BoehringerIngelheim-2025-BI-098491

PATIENT
  Age: 51 Year
  Sex: Male

DRUGS (1)
  1. OFEV [Suspect]
     Active Substance: NINTEDANIB
     Indication: Pulmonary fibrosis
     Dates: start: 20250301, end: 20250919

REACTIONS (3)
  - Thrombocytopenia [Recovering/Resolving]
  - Haemoglobin decreased [Unknown]
  - Red blood cell count decreased [Unknown]

NARRATIVE: CASE EVENT DATE: 20250918
